FAERS Safety Report 19786872 (Version 3)
Quarter: 2021Q4

REPORT INFORMATION
  Report Type: Spontaneous
  Country: IT (occurrence: IT)
  Receive Date: 20210903
  Receipt Date: 20211011
  Transmission Date: 20220304
  Serious: Yes (Hospitalization, Other)
  Sender: FDA-Public Use
  Company Number: IT-ROCHE-2898686

PATIENT
  Age: 39 Year
  Sex: Male

DRUGS (2)
  1. OCRELIZUMAB [Suspect]
     Active Substance: OCRELIZUMAB
     Indication: Relapsing multiple sclerosis
     Route: 042
     Dates: start: 20200114
  2. OCRELIZUMAB [Suspect]
     Active Substance: OCRELIZUMAB
     Route: 042
     Dates: start: 20210128

REACTIONS (8)
  - Parvovirus B19 infection [Recovering/Resolving]
  - Headache [Recovering/Resolving]
  - Sopor [Recovering/Resolving]
  - Pyrexia [Recovering/Resolving]
  - Meningoencephalitis viral [Recovering/Resolving]
  - Muscle rigidity [Recovering/Resolving]
  - Psychomotor skills impaired [Recovering/Resolving]
  - Rash [Recovering/Resolving]

NARRATIVE: CASE EVENT DATE: 20210805
